FAERS Safety Report 7428032-X (Version None)
Quarter: 2011Q2

REPORT INFORMATION
  Report Type: 
  Country: None (occurrence: None)
  Receive Date: 20110421
  Receipt Date: 20110413
  Transmission Date: 20111010
  Serious: Yes (Hospitalization, Other)
  Sender: FDA-Public Use
  Company Number: GB-BIOGENIDEC-2011BI003408

PATIENT
  Age: 42 Year
  Sex: Female
  Weight: 87 kg

DRUGS (4)
  1. CHOLESTYRAMINE [Concomitant]
     Indication: CROHN'S DISEASE
     Route: 048
  2. CITALOPRAM HYDROBROMIDE [Concomitant]
     Indication: DEPRESSION
     Route: 048
     Dates: end: 20101015
  3. TYSABRI [Suspect]
     Indication: MULTIPLE SCLEROSIS
     Route: 042
     Dates: start: 20081210
  4. DULOXETINE [Concomitant]
     Indication: DEPRESSION
     Route: 048
     Dates: start: 20101015

REACTIONS (1)
  - BASAL CELL CARCINOMA [None]
